FAERS Safety Report 16252521 (Version 3)
Quarter: 2020Q2

REPORT INFORMATION
  Report Type: Report from Study
  Country: US (occurrence: US)
  Receive Date: 20190429
  Receipt Date: 20200513
  Transmission Date: 20200713
  Serious: Yes (Hospitalization)
  Sender: FDA-Public Use
  Company Number: US-ACTELION-A-NJ2018-177031

PATIENT
  Sex: Female
  Weight: 81.63 kg

DRUGS (10)
  1. FLECAINIDE [Concomitant]
     Active Substance: FLECAINIDE
     Dosage: UNK
     Dates: start: 201906
  2. UPTRAVI [Suspect]
     Active Substance: SELEXIPAG
     Dosage: 300 MCG, BID
     Route: 048
  3. UPTRAVI [Suspect]
     Active Substance: SELEXIPAG
     Indication: PULMONARY ARTERIAL HYPERTENSION
     Dosage: 800 MCG, BID
     Route: 048
     Dates: start: 20181023
  4. UPTRAVI [Suspect]
     Active Substance: SELEXIPAG
     Dosage: 600 MCG, BID
     Route: 048
  5. ELIQUIS [Concomitant]
     Active Substance: APIXABAN
  6. UPTRAVI [Suspect]
     Active Substance: SELEXIPAG
     Dosage: 1200 MCG, BID
     Route: 048
  7. OPSUMIT [Suspect]
     Active Substance: MACITENTAN
     Indication: PULMONARY ARTERIAL HYPERTENSION
     Dosage: 10 MG, QD
     Route: 048
     Dates: start: 20180201
  8. UPTRAVI [Suspect]
     Active Substance: SELEXIPAG
     Dosage: 200 MCG
     Route: 048
  9. UPTRAVI [Suspect]
     Active Substance: SELEXIPAG
     Dosage: 1000 MCG, BID
     Route: 048
  10. AMIODARONE [Concomitant]
     Active Substance: AMIODARONE

REACTIONS (8)
  - Atrial fibrillation [Unknown]
  - Pain [Unknown]
  - Discomfort [Recovering/Resolving]
  - Quality of life decreased [Unknown]
  - Myalgia [Recovering/Resolving]
  - Irritable bowel syndrome [Unknown]
  - Hospitalisation [Unknown]
  - Decreased appetite [Unknown]
